FAERS Safety Report 15152985 (Version 2)
Quarter: 2018Q4

REPORT INFORMATION
  Report Type: Spontaneous
  Country: US (occurrence: US)
  Receive Date: 20180717
  Receipt Date: 20181004
  Transmission Date: 20190204
  Serious: No
  Sender: FDA-Public Use
  Company Number: US-PFIZER INC-2018285633

PATIENT
  Age: 67 Year
  Sex: Female
  Weight: 58.6 kg

DRUGS (1)
  1. LYRICA [Suspect]
     Active Substance: PREGABALIN
     Indication: FIBROMYALGIA
     Dosage: 150 MG, 3X/DAY
     Route: 048
     Dates: start: 2000

REACTIONS (4)
  - Product use issue [Unknown]
  - Movement disorder [Unknown]
  - Tremor [Unknown]
  - Nerve injury [Unknown]
